FAERS Safety Report 9129341 (Version 2)
Quarter: 2013Q2

REPORT INFORMATION
  Report Type: Spontaneous
  Country: US (occurrence: US)
  Receive Date: 20130228
  Receipt Date: 20130412
  Transmission Date: 20140414
  Serious: No
  Sender: FDA-Public Use
  Company Number: US-PFIZER INC-2013066578

PATIENT
  Age: 22 Year
  Sex: Male
  Weight: 104.31 kg

DRUGS (2)
  1. BENEFIX [Suspect]
     Indication: FACTOR IX DEFICIENCY
     Dosage: 2 IU/KG, 2X/WEEK
  2. BENEFIX [Suspect]
     Indication: PROPHYLAXIS

REACTIONS (1)
  - Off label use [Unknown]
